FAERS Safety Report 12746279 (Version 1)
Quarter: 2016Q3

REPORT INFORMATION
  Report Type: Spontaneous
  Country: AT (occurrence: AT)
  Receive Date: 20160915
  Receipt Date: 20160915
  Transmission Date: 20161109
  Serious: Yes (Hospitalization)
  Sender: FDA-Public Use
  Company Number: AT-CELGENEUS-AUT-2016084041

PATIENT
  Age: 84 Year
  Sex: Female
  Weight: 67 kg

DRUGS (14)
  1. DEXAMETHASONE ORAL [Suspect]
     Active Substance: DEXAMETHASONE
     Indication: PLASMA CELL MYELOMA
     Dosage: 20 MILLIGRAM
     Route: 048
     Dates: start: 20160412, end: 20160614
  2. GABAPENTIN. [Concomitant]
     Active Substance: GABAPENTIN
     Indication: PARKINSONISM
     Route: 048
     Dates: start: 20131116
  3. VITAMINS WITH MINERALS [Concomitant]
     Active Substance: MINERALS\VITAMINS
     Indication: OSTEOPOROSIS PROPHYLAXIS
     Dosage: .1875 MILLIGRAM
     Route: 048
     Dates: start: 20160405
  4. LOVENOX [Concomitant]
     Active Substance: ENOXAPARIN SODIUM
     Indication: PROPHYLAXIS
     Route: 058
     Dates: start: 20160503
  5. THROMBO ASS [Concomitant]
     Active Substance: ASPIRIN
     Indication: PERICARDIAL EFFUSION
     Dosage: 40 MILLIGRAM
     Route: 048
     Dates: start: 20131116
  6. CITALOPRAM [Concomitant]
     Active Substance: CITALOPRAM HYDROBROMIDE
     Indication: PARKINSONISM
     Dosage: 8.5714 MILLIGRAM
     Route: 048
     Dates: start: 20131029
  7. PANTOLOC [Concomitant]
     Active Substance: PANTOPRAZOLE SODIUM
     Indication: PROPHYLAXIS AGAINST GASTROINTESTINAL ULCER
     Dosage: .9091 MILLIGRAM
     Route: 048
     Dates: start: 20131116
  8. MIRTABENE [Concomitant]
     Active Substance: MIRTAZAPINE
     Indication: DEPRESSION
     Dosage: 2 DOSAGE FORMS
     Route: 048
     Dates: start: 20131116
  9. MEXALEN [Concomitant]
     Active Substance: ACETAMINOPHEN
     Indication: PAIN
     Dosage: 30 MILLIGRAM
     Route: 048
     Dates: start: 20160405
  10. REVLIMID [Suspect]
     Active Substance: LENALIDOMIDE
     Indication: PLASMA CELL MYELOMA
     Dosage: 10 MILLIGRAM
     Route: 048
     Dates: start: 20160412, end: 20160614
  11. MADOPAR [Concomitant]
     Active Substance: BENSERAZIDE HYDROCHLORIDE\LEVODOPA
     Indication: PARKINSONISM
     Dosage: 50 MILLIGRAM
     Route: 048
     Dates: start: 20131116
  12. LIDATRIM [Concomitant]
     Indication: C-REACTIVE PROTEIN INCREASED
     Dosage: 600 MILLIGRAM
     Route: 048
     Dates: start: 20160510
  13. NACL [Concomitant]
     Active Substance: SODIUM CHLORIDE
     Indication: RENAL FAILURE
     Dosage: 1500 MILLIGRAM
     Route: 041
     Dates: start: 20160503
  14. EUSAPRIM [Concomitant]
     Indication: PRODUCT USED FOR UNKNOWN INDICATION
     Route: 065
     Dates: end: 20160617

REACTIONS (1)
  - Drug hypersensitivity [Recovered/Resolved]

NARRATIVE: CASE EVENT DATE: 20160614
